FAERS Safety Report 21390221 (Version 1)
Quarter: 2022Q3

REPORT INFORMATION
  Report Type: Spontaneous
  Country: US (occurrence: US)
  Receive Date: 20220929
  Receipt Date: 20220929
  Transmission Date: 20221026
  Serious: Yes (Other)
  Sender: FDA-Public Use
  Company Number: US-ROCHE-3165342

PATIENT
  Sex: Female
  Weight: 116.98 kg

DRUGS (22)
  1. CLONAZEPAM [Suspect]
     Active Substance: CLONAZEPAM
     Indication: Relapsing-remitting multiple sclerosis
  2. OCREVUS [Suspect]
     Active Substance: OCRELIZUMAB
     Indication: Relapsing-remitting multiple sclerosis
     Route: 042
  3. VALIUM [Suspect]
     Active Substance: DIAZEPAM
     Indication: Anxiety
     Dosage: DAILY DOSE: 20 MILLIGRAM
  4. VALIUM [Suspect]
     Active Substance: DIAZEPAM
     Indication: Anxiety
  5. METHYLPREDNISOLONE [Concomitant]
     Active Substance: METHYLPREDNISOLONE
     Route: 042
  6. ACETAMINOPHEN [Concomitant]
     Active Substance: ACETAMINOPHEN
     Route: 048
  7. DIPHENHYDRAMINE [Concomitant]
     Active Substance: DIPHENHYDRAMINE
     Route: 048
  8. FAMOTIDINE [Concomitant]
     Active Substance: FAMOTIDINE
     Route: 042
  9. PROVENTIL [Concomitant]
     Active Substance: ALBUTEROL
     Indication: Wheezing
     Dosage: DAILY DOSE: 1 MILLIGRAM
  10. VITAMIN C [Concomitant]
     Active Substance: ASCORBIC ACID
     Route: 048
  11. LIORESAL [Concomitant]
     Active Substance: BACLOFEN
     Dosage: 10MG IN MORNING AND AFTERNOON.?20MG AT BEDTIME?DAILY DOSE: 30 MILLIGRAM
  12. VITAMIN D3 [Concomitant]
     Active Substance: CHOLECALCIFEROL
     Route: 048
  13. BENTYL [Concomitant]
     Active Substance: DICYCLOMINE HYDROCHLORIDE
     Dosage: 10-20MG TOTAL
     Route: 048
  14. GALCANEZUMAB-GNLM [Concomitant]
     Active Substance: GALCANEZUMAB-GNLM
     Route: 058
  15. NARCO [Concomitant]
     Indication: Pain
     Route: 048
  16. LINZESS [Concomitant]
     Active Substance: LINACLOTIDE
     Route: 048
  17. SINGULAIR [Concomitant]
     Active Substance: MONTELUKAST SODIUM
     Dosage: EVERY EVENING?DAILY DOSE: 10 MILLIGRAM
     Route: 048
  18. PROTONIX [Concomitant]
     Active Substance: PANTOPRAZOLE SODIUM
     Dosage: DAILY DOSE: 40 MILLIGRAM
  19. LYRICA [Concomitant]
     Active Substance: PREGABALIN
     Dosage: DAILY DOSE: 300 MILLIGRAM
     Route: 048
  20. NURTEC ODT [Concomitant]
     Active Substance: RIMEGEPANT SULFATE
     Indication: Migraine
  21. EFFEXOR XR [Concomitant]
     Active Substance: VENLAFAXINE HYDROCHLORIDE
     Dosage: DAILY DOSE: 150 MILLIGRAM
     Route: 048
  22. LAMICTAL [Concomitant]
     Active Substance: LAMOTRIGINE
     Dosage: 25MG BY MOUTH EVERY EVENING FOR A5 DAYS, THEN 2 TABLETS 50MG TOTAL EVERY EVENING FOR 15 DAYS, 3 TABL

REACTIONS (13)
  - Demyelination [Unknown]
  - Seizure [Unknown]
  - Multiple sclerosis [Unknown]
  - Choking [Unknown]
  - Fatigue [Unknown]
  - Depression [Unknown]
  - Blood glucose increased [Unknown]
  - Anion gap decreased [Unknown]
  - Migraine [Unknown]
  - Asthma [Unknown]
  - Gastrooesophageal reflux disease [Unknown]
  - Sciatica [Unknown]
  - Product use in unapproved indication [Unknown]
